FAERS Safety Report 7424069-5 (Version None)
Quarter: 2011Q2

REPORT INFORMATION
  Report Type: 
  Country: None (occurrence: None)
  Receive Date: 20110419
  Receipt Date: 20110414
  Transmission Date: 20111010
  Serious: Yes (Other)
  Sender: FDA-Public Use
  Company Number: DE-GENZYME-THYM-1002089

PATIENT
  Sex: Female
  Weight: 77 kg

DRUGS (9)
  1. THYMOGLOBULIN [Suspect]
     Indication: IMMUNOSUPPRESSION
     Dosage: 100 MG, ONCE
     Route: 042
     Dates: start: 20090307, end: 20090307
  2. MYCOPHENOLATE MOFETIL [Concomitant]
     Indication: RENAL TRANSPLANT
  3. TAVEGIL [Concomitant]
     Indication: ALLERGY PROPHYLAXIS
     Dosage: UNK
     Dates: start: 20090307, end: 20090311
  4. TACROLIMUS [Concomitant]
     Indication: IMMUNOSUPPRESSANT DRUG THERAPY
     Dosage: 15 MG, ONCE
     Route: 048
     Dates: start: 20090307, end: 20090307
  5. MYCOPHENOLATE MOFETIL [Concomitant]
     Indication: IMMUNOSUPPRESSANT DRUG THERAPY
     Dosage: 1000 MG, BID
     Route: 048
     Dates: start: 20090307, end: 20090307
  6. TACROLIMUS [Concomitant]
     Indication: RENAL TRANSPLANT
  7. PREDNISOLONE [Concomitant]
     Indication: IMMUNOSUPPRESSANT DRUG THERAPY
     Dosage: 250 MG, BID
     Route: 042
     Dates: start: 20090307, end: 20090307
  8. PREDNISOLONE [Concomitant]
     Indication: RENAL TRANSPLANT
  9. TAGAMET [Concomitant]
     Indication: ALLERGY PROPHYLAXIS
     Dosage: 200 MG, UNK
     Route: 042
     Dates: start: 20090307, end: 20090307

REACTIONS (2)
  - SKIN ULCER [None]
  - HYPERSENSITIVITY [None]
